FAERS Safety Report 5249371-7 (Version None)
Quarter: 2007Q1

REPORT INFORMATION
  Report Type: 
  Country: None (occurrence: None)
  Receive Date: 20070228
  Receipt Date: 20060926
  Transmission Date: 20070707
  Serious: No
  Sender: FDA-Public Use
  Company Number: US-GLAXOSMITHKLINE-A0619903A

PATIENT
  Age: 85 Year
  Sex: Male

DRUGS (1)
  1. VALTREX [Suspect]
     Indication: HERPES ZOSTER
     Dosage: 1G SEE DOSAGE TEXT
     Route: 048
     Dates: start: 20060804

REACTIONS (1)
  - DISORIENTATION [None]
